FAERS Safety Report 4821261-0 (Version None)
Quarter: 2005Q4

REPORT INFORMATION
  Report Type: 
  Country: None (occurrence: None)
  Receive Date: 20051104
  Receipt Date: 20051104
  Transmission Date: 20060501
  Serious: Yes (Death, Hospitalization)
  Sender: FDA-Public Use
  Company Number: None

PATIENT
  Age: 57 Year
  Sex: Male
  Weight: 90.7194 kg

DRUGS (4)
  1. CISPLATIN [Suspect]
  2. FLUOROURACIL [Suspect]
  3. RADIATION [Concomitant]
  4. DOCETAXEL [Suspect]

REACTIONS (11)
  - ACUTE RESPIRATORY DISTRESS SYNDROME [None]
  - ANASTOMOTIC LEAK [None]
  - EMPYEMA [None]
  - HYPOXIA [None]
  - MULTI-ORGAN FAILURE [None]
  - OESOPHAGEAL DISORDER [None]
  - PNEUMONIA [None]
  - RESPIRATORY ACIDOSIS [None]
  - RESPIRATORY ARREST [None]
  - RESPIRATORY FAILURE [None]
  - SEPTIC SHOCK [None]
